FAERS Safety Report 10149568 (Version 1)
Quarter: 2014Q2

REPORT INFORMATION
  Report Type: Spontaneous
  Country: US (occurrence: US)
  Receive Date: 20140502
  Receipt Date: 20140502
  Transmission Date: 20141212
  Serious: No
  Sender: FDA-Public Use
  Company Number: US-PFIZER INC-2014118250

PATIENT
  Age: 69 Year
  Sex: Male

DRUGS (2)
  1. XALKORI [Suspect]
     Indication: METASTASES TO CENTRAL NERVOUS SYSTEM
     Dosage: 250 MG, 2X/DAY (1CAPSULE TWICE A DAY)
     Dates: start: 201401
  2. ONDANSETRON [Suspect]
     Indication: NAUSEA
     Dosage: UNK

REACTIONS (7)
  - Nausea [Unknown]
  - Diarrhoea [Unknown]
  - Decreased appetite [Unknown]
  - Dysgeusia [Unknown]
  - Local swelling [Not Recovered/Not Resolved]
  - Oral mucosal blistering [Unknown]
  - Petechiae [Unknown]
